FAERS Safety Report 5214960-2 (Version None)
Quarter: 2006Q4

REPORT INFORMATION
  Report Type: 
  Country: None (occurrence: None)
  Receive Date: 20061108
  Receipt Date: 20060705
  Transmission Date: 20070319
  Serious: Yes (Other)
  Sender: FDA-Public Use
  Company Number: US200607000634

PATIENT
  Age: 66 Year
  Sex: Female

DRUGS (10)
  1. CYMBALTA [Suspect]
     Indication: PAIN
     Dosage: SEE IMAGE
     Dates: start: 20060601
  2. CYMBALTA [Suspect]
     Indication: PAIN
     Dosage: SEE IMAGE
     Dates: start: 20060601
  3. CYMBALTA [Suspect]
     Dosage: 30 MG
  4. PROZAC [Suspect]
     Indication: DEPRESSION
     Dosage: 80 MG, DAILY (1/D)
     Dates: start: 19860101
  5. XANAX /USA/ (ALPRAZOLAM) [Concomitant]
  6. ASPIRIN [Concomitant]
  7. NITROGLYCERIN (NITROGLYCERIN UNKNOWN MANUFACTURER) [Concomitant]
  8. ALAVERT /USA/ (LORATADINE) [Concomitant]
  9. FLONASE [Concomitant]
  10. NEXIUM [Concomitant]

REACTIONS (21)
  - ABNORMAL BEHAVIOUR [None]
  - ADVERSE EVENT [None]
  - AGITATION [None]
  - ANGER [None]
  - ANXIETY [None]
  - CARDIAC FAILURE CONGESTIVE [None]
  - DISCOMFORT [None]
  - ENERGY INCREASED [None]
  - FEELING ABNORMAL [None]
  - IMPULSIVE BEHAVIOUR [None]
  - INSOMNIA [None]
  - INTERVERTEBRAL DISC PROTRUSION [None]
  - IRRITABILITY [None]
  - MEDICATION ERROR [None]
  - MYOCARDIAL INFARCTION [None]
  - PAIN [None]
  - RESTLESSNESS [None]
  - RHEUMATOID ARTHRITIS [None]
  - ROTATOR CUFF SYNDROME [None]
  - SPINAL COLUMN STENOSIS [None]
  - SPINAL OSTEOARTHRITIS [None]
